FAERS Safety Report 9431068 (Version 1)
Quarter: 2013Q3

REPORT INFORMATION
  Report Type: Spontaneous
  Country: DE (occurrence: DE)
  Receive Date: 20130730
  Receipt Date: 20130730
  Transmission Date: 20140515
  Serious: Yes (Hospitalization)
  Sender: FDA-Public Use
  Company Number: DE-B.I. PHARMACEUTICALS,INC./RIDGEFIELD-2013-DE-02024DE

PATIENT
  Age: 80 Year
  Sex: Male
  Weight: 73 kg

DRUGS (6)
  1. PRADAXA [Suspect]
     Indication: ATRIAL FIBRILLATION
     Dosage: 220 MG
     Dates: start: 20130719, end: 20130725
  2. CRESTOR [Concomitant]
  3. VESIKUR [Concomitant]
     Dosage: 5 MG
  4. DIGITOXIN [Concomitant]
  5. ALEA [Concomitant]
     Route: 042
  6. HEPARIN [Concomitant]
     Indication: PROPHYLAXIS

REACTIONS (2)
  - Tachycardia [Recovered/Resolved]
  - Overdose [Recovered/Resolved]
